FAERS Safety Report 7477864-0 (Version None)
Quarter: 2011Q2

REPORT INFORMATION
  Report Type: 
  Country: None (occurrence: None)
  Receive Date: 20110513
  Receipt Date: 20110428
  Transmission Date: 20111010
  Serious: Yes (Other)
  Sender: FDA-Public Use
  Company Number: US-BAYER-201038972NA

PATIENT
  Age: 21 Year
  Sex: Female
  Weight: 88.435 kg

DRUGS (3)
  1. YASMIN [Suspect]
     Indication: MENSTRUATION IRREGULAR
     Dosage: UNK UNK, QD
     Route: 048
     Dates: start: 20060801, end: 20070101
  2. IBUPROFEN (ADVIL) [Concomitant]
  3. MOTRIN [Concomitant]

REACTIONS (2)
  - CHOLELITHIASIS [None]
  - GALLBLADDER NON-FUNCTIONING [None]
